FAERS Safety Report 10167631 (Version 2)
Quarter: 2016Q3

REPORT INFORMATION
  Report Type: Spontaneous
  Country: KH (occurrence: KH)
  Receive Date: 20140512
  Receipt Date: 20160715
  Transmission Date: 20161108
  Serious: Yes (Life-Threatening, Disabling)
  Sender: FDA-Public Use
  Company Number: KH-BRISTOL-MYERS SQUIBB COMPANY-20721361

PATIENT

DRUGS (7)
  1. ETHAMBUTOL HCL [Concomitant]
     Active Substance: ETHAMBUTOL HYDROCHLORIDE
     Indication: TUBERCULOSIS
     Dosage: 1DF:15-20 MG/KG/DAY
     Route: 065
  2. STAVUDINE. [Concomitant]
     Active Substance: STAVUDINE
     Indication: ANTIRETROVIRAL THERAPY
     Dosage: 30 MG, BID
     Route: 065
  3. ISONIAZID. [Concomitant]
     Active Substance: ISONIAZID
     Indication: TUBERCULOSIS
     Dosage: 1DF:4-5 MG/KG/DAY
     Route: 065
  4. PYRAZINAMIDE. [Concomitant]
     Active Substance: PYRAZINAMIDE
     Indication: TUBERCULOSIS
     Dosage: 1DF:20-30 MG/KG/DAY
     Route: 065
  5. EFAVIRENZ [Suspect]
     Active Substance: EFAVIRENZ
     Indication: HIV INFECTION
     Dosage: EVENING
     Route: 048
  6. LAMIVUDINE. [Concomitant]
     Active Substance: LAMIVUDINE
     Indication: ANTIRETROVIRAL THERAPY
     Dosage: 150 MG, UNK
     Route: 065
  7. RIFAMPIN. [Concomitant]
     Active Substance: RIFAMPIN
     Indication: TUBERCULOSIS
     Dosage: 1DF:8-10 MG/KG/DAY
     Route: 065

REACTIONS (1)
  - Insomnia [Unknown]
